FAERS Safety Report 25110397 (Version 1)
Quarter: 2025Q1

REPORT INFORMATION
  Report Type: Spontaneous
  Country: IE (occurrence: IE)
  Receive Date: 20250324
  Receipt Date: 20250324
  Transmission Date: 20250408
  Serious: Yes (Hospitalization, Other)
  Sender: NOVO NORDISK
  Company Number: None

PATIENT
  Age: 13 Year
  Sex: Female
  Weight: 36 kg

DRUGS (15)
  1. LEVOTHYROXINE [Suspect]
     Active Substance: LEVOTHYROXINE
     Indication: Product used for unknown indication
     Dosage: 25 ?G, QD
     Route: 048
     Dates: start: 2019, end: 2019
  2. LEVOTHYROXINE [Suspect]
     Active Substance: LEVOTHYROXINE
     Dosage: 37.5 ?G, QD(DOSE WENT FROM 25UMG TO 37.5UMG DURING THE 1ST QUARTER IN 2019 )
     Route: 048
     Dates: start: 2019, end: 202412
  3. LEVOTHYROXINE [Suspect]
     Active Substance: LEVOTHYROXINE
     Dosage: 50 ?G, QD
     Route: 048
     Dates: start: 20241213
  4. NORDITROPIN [Suspect]
     Active Substance: SOMATROPIN
     Indication: Blood growth hormone
     Dosage: 0.09 ML, QD ((0.3MG) AT NIGHT )
     Route: 058
     Dates: start: 20121128, end: 20130402
  5. NORDITROPIN [Suspect]
     Active Substance: SOMATROPIN
     Dosage: 0.4 MG, QD AT NIGHT
     Route: 058
     Dates: start: 20130506, end: 20141011
  6. NORDITROPIN [Suspect]
     Active Substance: SOMATROPIN
     Dosage: 0.6 MG, QD AT NIGHT
     Route: 058
     Dates: start: 20141122, end: 20200331
  7. NORDITROPIN [Suspect]
     Active Substance: SOMATROPIN
     Indication: Blood growth hormone
     Dosage: 0.6 MG, QD
     Route: 058
     Dates: start: 20200406, end: 20200910
  8. NORDITROPIN [Suspect]
     Active Substance: SOMATROPIN
     Dosage: 0.7 MG, QD
     Route: 058
     Dates: start: 20201015, end: 20210712
  9. NORDITROPIN [Suspect]
     Active Substance: SOMATROPIN
     Dosage: 0.8 MG, QD AT NIGHT
     Route: 058
     Dates: start: 20221024, end: 20230331
  10. NORDITROPIN [Suspect]
     Active Substance: SOMATROPIN
     Dosage: 0.9 MG, QD AT NIGHT
     Route: 058
     Dates: start: 20220504, end: 20221003
  11. NORDITROPIN [Suspect]
     Active Substance: SOMATROPIN
     Dosage: 0.65 MG, QD(CONFIRMING DOSE... MAM THINKS SHOULD BE 0.7MG NOT 0.65MG)
     Route: 058
     Dates: start: 20210806, end: 20211111
  12. NORDITROPIN [Suspect]
     Active Substance: SOMATROPIN
     Dosage: 0.7 MG, QD AT NIGHT
     Route: 058
     Dates: start: 20211207, end: 20220406
  13. OXYCONTIN [Concomitant]
     Active Substance: OXYCODONE HYDROCHLORIDE
     Indication: Pain
     Dates: start: 202412
  14. MORPHINE [Concomitant]
     Active Substance: MORPHINE
     Indication: Pain
     Dates: start: 202412
  15. IBUPROFEN [Concomitant]
     Active Substance: IBUPROFEN
     Dates: start: 202412

REACTIONS (14)
  - Somnolence [Recovered/Resolved]
  - Sleep disorder [Recovered/Resolved]
  - Blood pressure decreased [Recovered/Resolved]
  - Blood pressure fluctuation [Recovered/Resolved]
  - Restlessness [Recovering/Resolving]
  - Insomnia [Recovering/Resolving]
  - Head discomfort [Recovering/Resolving]
  - Diarrhoea [Recovered/Resolved]
  - Heart rate increased [Recovering/Resolving]
  - Growth retardation [Not Recovered/Not Resolved]
  - Scoliosis [Recovered/Resolved]
  - Condition aggravated [Recovering/Resolving]
  - Headache [Recovering/Resolving]
  - Product use complaint [Recovering/Resolving]

NARRATIVE: CASE EVENT DATE: 20200101
